FAERS Safety Report 4459855-7 (Version None)
Quarter: 2004Q3

REPORT INFORMATION
  Report Type: 
  Country: None (occurrence: None)
  Receive Date: 20040923
  Receipt Date: 20040910
  Transmission Date: 20050211
  Serious: Yes (Death)
  Sender: FDA-Public Use
  Company Number: 208664

PATIENT
  Age: 57 Year
  Sex: Female
  Weight: 67 kg

DRUGS (5)
  1. HERCEPTIN [Suspect]
     Indication: BREAST CANCER
     Dosage: 260 MG, SINGLE, INTRAVENOUS
     Route: 042
     Dates: start: 20040804, end: 20040804
  2. NAVELBINE [Suspect]
     Indication: BREAST CANCER
     Dosage: 10 MG, SINGLE, INTRAVENOUS
     Route: 042
     Dates: start: 20040805, end: 20040805
  3. PYRALGIN (DIPYRONE) [Concomitant]
  4. PAPAVERINE (PAPAVERINE HYDROCHLORIDE) [Concomitant]
  5. HYDROCORTISONE [Concomitant]

REACTIONS (14)
  - BLOOD UREA INCREASED [None]
  - BLOOD URIC ACID INCREASED [None]
  - CONFUSIONAL STATE [None]
  - FIBRIN D DIMER INCREASED [None]
  - HYPOTENSION [None]
  - INTRACRANIAL PRESSURE INCREASED [None]
  - MYOCARDIAL INFARCTION [None]
  - PAROXYSMAL ARRHYTHMIA [None]
  - PNEUMONIA [None]
  - PROTEIN TOTAL DECREASED [None]
  - PYREXIA [None]
  - SUDDEN DEATH [None]
  - TACHYCARDIA [None]
  - THINKING ABNORMAL [None]
